FAERS Safety Report 9275475 (Version 2)
Quarter: 2013Q3

REPORT INFORMATION
  Report Type: Spontaneous
  Country: BR (occurrence: None)
  Receive Date: 20130430
  Receipt Date: 20130703
  Transmission Date: 20140515
  Serious: Yes (Other)
  Sender: FDA-Public Use
  Company Number: DSJ-2013-09102

PATIENT
  Sex: Female
  Weight: 70 kg

DRUGS (6)
  1. BENICAR (OLMESARTAN MEDOXOMIL) (TABLET) (OLMESARTAN MEDOXOMIL) [Suspect]
     Indication: HYPERTENSION
     Dosage: 40 MG (40 MG, 1 IN 1 D), PER ORAL
     Route: 048
  2. AMIODARONE [Suspect]
     Indication: ARRHYTHMIA
     Route: 048
     Dates: start: 2012
  3. SOTALOL [Suspect]
     Indication: ARRHYTHMIA
     Route: 048
     Dates: start: 2012
  4. LEVOTHYROXINE SODIUM [Concomitant]
  5. ATORVASTATIN [Concomitant]
  6. RALOXIFENE [Concomitant]

REACTIONS (5)
  - Arrhythmia [None]
  - Thyroid disorder [None]
  - Condition aggravated [None]
  - Hypotension [None]
  - Drug ineffective [None]
